FAERS Safety Report 9275867 (Version 2)
Quarter: 2013Q2

REPORT INFORMATION
  Report Type: Report from Study
  Country: US (occurrence: US)
  Receive Date: 20130507
  Receipt Date: 20130515
  Transmission Date: 20140414
  Serious: No
  Sender: FDA-Public Use
  Company Number: US-ABBOTT-13P-163-1083333-00

PATIENT
  Sex: Male

DRUGS (15)
  1. ANDROGEL 1% [Suspect]
     Indication: BLOOD TESTOSTERONE DECREASED
     Dates: start: 201207
  2. CRESTOR [Concomitant]
     Indication: BLOOD CHOLESTEROL INCREASED
  3. PROTONIX [Concomitant]
     Indication: PRODUCT USED FOR UNKNOWN INDICATION
  4. VITAMIN D [Concomitant]
     Indication: VITAMIN SUPPLEMENTATION
  5. METOPROLOL [Concomitant]
     Indication: HYPERTENSION
  6. KLONOPIN [Concomitant]
     Indication: ANXIETY
  7. VITAMIN E [Concomitant]
     Indication: VITAMIN SUPPLEMENTATION
  8. FENOFIBRATE [Concomitant]
     Indication: BLOOD CHOLESTEROL INCREASED
  9. ARTHROTEC [Concomitant]
     Indication: ARTHRALGIA
  10. ZOSTRIX [Concomitant]
     Indication: HERPES VIRUS INFECTION
  11. WELLBUTRIN [Concomitant]
     Indication: DEPRESSION
  12. STRIBILD [Concomitant]
     Indication: HIV INFECTION
  13. SPIRIVA [Concomitant]
     Indication: EMPHYSEMA
  14. UNKNOWN INHALER [Concomitant]
     Indication: EMPHYSEMA
  15. ASPIRIN [Concomitant]
     Indication: CARDIOVASCULAR EVENT PROPHYLAXIS

REACTIONS (7)
  - Inappropriate schedule of drug administration [Not Recovered/Not Resolved]
  - Product odour abnormal [Not Recovered/Not Resolved]
  - Loss of libido [Not Recovered/Not Resolved]
  - Memory impairment [Not Recovered/Not Resolved]
  - Gait disturbance [Not Recovered/Not Resolved]
  - Thrombosis [Recovered/Resolved]
  - Anxiety [Recovered/Resolved]
